FAERS Safety Report 8878902 (Version 1)
Quarter: 2012Q4

REPORT INFORMATION
  Report Type: 
  Country: CA (occurrence: CA)
  Receive Date: 20121026
  Receipt Date: 20121026
  Transmission Date: 20130627
  Serious: Yes (Other)
  Sender: FDA-Public Use
  Company Number: CA-ALLERGAN-1214386US

PATIENT
  Sex: Female

DRUGS (1)
  1. OZURDEX [Suspect]
     Indication: MACULAR EDEMA
     Dosage: UNK
     Route: 047
     Dates: start: 20120924

REACTIONS (2)
  - Visual acuity reduced [Unknown]
  - Vitreous haemorrhage [Unknown]
